FAERS Safety Report 12389084 (Version 3)
Quarter: 2016Q3

REPORT INFORMATION
  Report Type: Spontaneous
  Country: BR (occurrence: BR)
  Receive Date: 20160520
  Receipt Date: 20160713
  Transmission Date: 20161109
  Serious: Yes (Other)
  Sender: FDA-Public Use
  Company Number: BR-ASTRAZENECA-2016SE51608

PATIENT
  Age: 1770 Day
  Sex: Male

DRUGS (2)
  1. VANNAIR [Suspect]
     Active Substance: BUDESONIDE\FORMOTEROL FUMARATE DIHYDRATE
     Indication: ASTHMA
     Dosage: 80/4.5 MCG,  1 JET TWO TIMES A DAY
     Route: 055
     Dates: start: 20160402
  2. PIEMONTE [Concomitant]
     Active Substance: MONTELUKAST SODIUM
     Indication: ASTHMA
     Dosage: DAILY
     Route: 048

REACTIONS (6)
  - Off label use [Not Recovered/Not Resolved]
  - Off label use of device [Not Recovered/Not Resolved]
  - Device malfunction [Unknown]
  - Asthmatic crisis [Recovered/Resolved]
  - Cough [Not Recovered/Not Resolved]
  - Drug administered to patient of inappropriate age [Not Recovered/Not Resolved]

NARRATIVE: CASE EVENT DATE: 20160402
